FAERS Safety Report 9267138 (Version 1)
Quarter: 2013Q2

REPORT INFORMATION
  Report Type: Spontaneous
  Country: US (occurrence: US)
  Receive Date: 20130502
  Receipt Date: 20130502
  Transmission Date: 20140414
  Serious: No
  Sender: FDA-Public Use
  Company Number: US-009507513-1304USA005255

PATIENT
  Age: 15 Year
  Sex: Female

DRUGS (1)
  1. NEXPLANON [Suspect]
     Indication: CONTRACEPTION
     Dosage: UNK DF, UNK
     Route: 059
     Dates: start: 20130208, end: 20130408

REACTIONS (4)
  - Injection site nodule [Unknown]
  - Complication of device insertion [Unknown]
  - Implant site erosion [Unknown]
  - Medical device removal [Unknown]
